FAERS Safety Report 5105135-6 (Version None)
Quarter: 2006Q3

REPORT INFORMATION
  Report Type: 
  Country: None (occurrence: None)
  Receive Date: 20060914
  Receipt Date: 20060904
  Transmission Date: 20061208
  Serious: Yes (Hospitalization)
  Sender: FDA-Public Use
  Company Number: SE-MERCK-0609SWE00007

PATIENT
  Age: 66 Year
  Sex: Female

DRUGS (6)
  1. ZETIA [Suspect]
     Route: 048
     Dates: start: 20060626, end: 20060706
  2. ZETIA [Suspect]
     Route: 048
     Dates: start: 20060701, end: 20060701
  3. SIMVASTATIN [Concomitant]
     Route: 048
  4. ENALAPRIL MALEATE AND HYDROCHLOROTHIAZIDE [Concomitant]
     Route: 048
  5. ASPIRIN [Concomitant]
     Route: 048
  6. INSULIN LISPRO [Concomitant]
     Route: 065

REACTIONS (1)
  - HAEMATOCHEZIA [None]
